FAERS Safety Report 19764192 (Version 4)
Quarter: 2021Q3

REPORT INFORMATION
  Report Type: Report from Study
  Country: CA (occurrence: CA)
  Receive Date: 20210830
  Receipt Date: 20210930
  Transmission Date: 20211014
  Serious: Yes (Other)
  Sender: FDA-Public Use
  Company Number: CA-JNJFOC-20210845069

PATIENT
  Age: 69 Year
  Sex: Female
  Weight: 57.2 kg

DRUGS (22)
  1. MACITENTAN [Suspect]
     Active Substance: MACITENTAN
     Indication: PULMONARY HYPERTENSION
     Route: 048
     Dates: start: 20201125
  2. ADCIRCA [Concomitant]
     Active Substance: TADALAFIL
  3. SYNTHROID [Concomitant]
     Active Substance: LEVOTHYROXINE SODIUM
  4. SELEXIPAG [Suspect]
     Active Substance: SELEXIPAG
     Indication: CONNECTIVE TISSUE DISORDER
     Route: 048
     Dates: start: 20210816
  5. PANTOPRAZOLE [Concomitant]
     Active Substance: PANTOPRAZOLE
  6. CITALOPRAM [Concomitant]
     Active Substance: CITALOPRAM HYDROBROMIDE
  7. SELEXIPAG [Suspect]
     Active Substance: SELEXIPAG
     Route: 048
     Dates: start: 20210816
  8. AAS [Concomitant]
     Active Substance: ASPIRIN
  9. METFORMIN [Concomitant]
     Active Substance: METFORMIN HYDROCHLORIDE
  10. ALENDRONATE SODIUM. [Concomitant]
     Active Substance: ALENDRONATE SODIUM
     Dosage: WEEKLY
  11. ATORVASTATIN [Concomitant]
     Active Substance: ATORVASTATIN
  12. PREDNISONE. [Concomitant]
     Active Substance: PREDNISONE
  13. ATIVAN [Concomitant]
     Active Substance: LORAZEPAM
  14. VITAMIN D [ERGOCALCIFEROL] [Concomitant]
     Active Substance: ERGOCALCIFEROL
     Dosage: 400 UI
  15. CALCIUM PLUS [CALCIUM] [Concomitant]
  16. SPIRONOLACTONE. [Concomitant]
     Active Substance: SPIRONOLACTONE
  17. CANDESARTAN. [Concomitant]
     Active Substance: CANDESARTAN
  18. CELLCEPT [Concomitant]
     Active Substance: MYCOPHENOLATE MOFETIL\MYCOPHENOLATE MOFETIL HYDROCHLORIDE
  19. FERROUS BISGLYCINATE [Concomitant]
     Active Substance: FERROUS BISGLYCINATE
  20. MACITENTAN [Suspect]
     Active Substance: MACITENTAN
     Indication: CONNECTIVE TISSUE DISORDER
  21. SELEXIPAG [Suspect]
     Active Substance: SELEXIPAG
     Indication: PULMONARY HYPERTENSION
     Route: 048
     Dates: start: 20210816
  22. LASIX [Concomitant]
     Active Substance: FUROSEMIDE
     Route: 048

REACTIONS (8)
  - Decreased appetite [Unknown]
  - Hot flush [Not Recovered/Not Resolved]
  - Blood pressure systolic decreased [Unknown]
  - Diarrhoea [Recovering/Resolving]
  - Weight decreased [Not Recovered/Not Resolved]
  - Headache [Unknown]
  - Dry mouth [Not Recovered/Not Resolved]
  - Vomiting [Unknown]

NARRATIVE: CASE EVENT DATE: 2021
